FAERS Safety Report 19060875 (Version 1)
Quarter: 2021Q1

REPORT INFORMATION
  Report Type: Report from Study
  Country: BR (occurrence: BR)
  Receive Date: 20210325
  Receipt Date: 20210325
  Transmission Date: 20210420
  Serious: Yes (Other)
  Sender: FDA-Public Use
  Company Number: NVSC2021BR065381

PATIENT
  Age: 58 Year

DRUGS (1)
  1. TEGRETOL XR [Suspect]
     Active Substance: CARBAMAZEPINE
     Indication: PRODUCT USED FOR UNKNOWN INDICATION
     Dosage: 1 DF, MORE THAN 6 YEAR
     Route: 065

REACTIONS (6)
  - Unresponsive to stimuli [Unknown]
  - General physical condition abnormal [Unknown]
  - Wrong technique in product usage process [Unknown]
  - Speech disorder [Unknown]
  - Oral discomfort [Unknown]
  - Fall [Unknown]
